FAERS Safety Report 5361190-X (Version None)
Quarter: 2007Q2

REPORT INFORMATION
  Report Type: 
  Country: None (occurrence: None)
  Receive Date: 20070530
  Receipt Date: 20070130
  Transmission Date: 20071010
  Serious: No
  Sender: FDA-Public Use
  Company Number: 2007PV029300

PATIENT
  Age: 60 Year
  Sex: Female

DRUGS (4)
  1. BYETTA [Suspect]
     Dosage: 5 MCG;BID;SC; 10 MCG;BID;SC
     Route: 058
     Dates: start: 20070123, end: 20070201
  2. BYETTA [Suspect]
     Dosage: 5 MCG;BID;SC; 10 MCG;BID;SC
     Route: 058
     Dates: start: 20070201
  3. METFORMIN HCL [Concomitant]
  4. ACTOS [Concomitant]

REACTIONS (2)
  - BLOOD GLUCOSE INCREASED [None]
  - NAUSEA [None]
